FAERS Safety Report 9144495 (Version 2)
Quarter: 2013Q2

REPORT INFORMATION
  Report Type: Spontaneous
  Country: FR (occurrence: FR)
  Receive Date: 20130306
  Receipt Date: 20130409
  Transmission Date: 20140414
  Serious: Yes (Hospitalization)
  Sender: FDA-Public Use
  Company Number: FR-GILEAD-2012-0057724

PATIENT
  Sex: Female

DRUGS (8)
  1. AMBRISENTAN [Suspect]
     Indication: PULMONARY ARTERIAL HYPERTENSION
     Dosage: UNK
     Route: 048
     Dates: start: 201201, end: 201202
  2. ADCIRCA [Concomitant]
     Indication: PULMONARY ARTERIAL HYPERTENSION
     Dosage: 20 MG, BID
     Route: 048
  3. CARDENSIEL [Concomitant]
     Dosage: 1.25 MG, BID
     Route: 048
  4. HEMIGOXINE [Concomitant]
     Dosage: 1 DF, QD
     Route: 048
  5. HYDREA [Concomitant]
     Dosage: 500 MG, BID
     Route: 048
  6. LEVOTHYROX [Concomitant]
     Indication: HYPOTHYROIDISM
     Dosage: 75 ?G, QD
     Route: 048
  7. PREVISCAN                          /00261401/ [Concomitant]
     Route: 048
  8. LASILIX                            /00032601/ [Concomitant]
     Dosage: 40 MG, QD
     Route: 048

REACTIONS (3)
  - Condition aggravated [Recovered/Resolved]
  - Oedema peripheral [Recovered/Resolved]
  - Dyspnoea [Recovered/Resolved]
